FAERS Safety Report 9286633 (Version 1)
Quarter: 2013Q2

REPORT INFORMATION
  Report Type: Spontaneous
  Country: AT (occurrence: AT)
  Receive Date: 20130513
  Receipt Date: 20130513
  Transmission Date: 20140414
  Serious: Yes (Hospitalization)
  Sender: FDA-Public Use
  Company Number: PHHY2013AT045481

PATIENT
  Age: 52 Year
  Sex: Female
  Weight: 88 kg

DRUGS (2)
  1. EBETREXAT [Suspect]
     Indication: PSORIATIC ARTHROPATHY
     Dosage: 1.5 MG, QW
  2. REMICADE [Suspect]
     Indication: PSORIATIC ARTHROPATHY
     Dosage: 400 MG, ONCE IN 8 WEEKS

REACTIONS (2)
  - Radius fracture [Recovered/Resolved]
  - Ulna fracture [Recovered/Resolved]
